FAERS Safety Report 8990217 (Version 1)
Quarter: 2012Q4

REPORT INFORMATION
  Report Type: 
  Country: US (occurrence: US)
  Receive Date: 20121228
  Receipt Date: 20121228
  Transmission Date: 20130627
  Serious: Yes (Other)
  Sender: FDA-Public Use
  Company Number: US-ENDO PHARMACEUTICALS INC.-PMES20120003

PATIENT
  Age: 75 Year
  Sex: Female

DRUGS (1)
  1. PROMETHAZINE HYDROCHLORIDE [Suspect]
     Indication: NAUSEA
     Dates: start: 20121218

REACTIONS (2)
  - Incorrect route of drug administration [Unknown]
  - Malaise [None]
